FAERS Safety Report 9924209 (Version 2)
Quarter: 2014Q1

REPORT INFORMATION
  Report Type: Spontaneous
  Country: US (occurrence: US)
  Receive Date: 20140226
  Receipt Date: 20140317
  Transmission Date: 20141002
  Serious: Yes (Hospitalization)
  Sender: FDA-Public Use
  Company Number: US-BIOGENIDEC-2014BI017964

PATIENT
  Age: 59 Year
  Sex: Female

DRUGS (1)
  1. AVONEX [Suspect]
     Indication: MULTIPLE SCLEROSIS
     Route: 030
     Dates: start: 19980301

REACTIONS (6)
  - Brain injury [Unknown]
  - Road traffic accident [Recovered/Resolved]
  - Coordination abnormal [Unknown]
  - Influenza [Unknown]
  - Influenza like illness [Unknown]
  - Nausea [Unknown]
